FAERS Safety Report 6202792-8 (Version None)
Quarter: 2009Q2

REPORT INFORMATION
  Report Type: 
  Country: None (occurrence: None)
  Receive Date: 20090526
  Receipt Date: 20090123
  Transmission Date: 20091009
  Serious: Yes (Hospitalization)
  Sender: FDA-Public Use
  Company Number: PL-PFIZER INC-2007025891

PATIENT
  Age: 77 Year

DRUGS (10)
  1. BLINDED *PLACEBO [Suspect]
     Dosage: QD: DAILY
     Route: 048
     Dates: start: 20061114
  2. BLINDED EPLERENONE [Suspect]
     Dosage: QD: DAILY
     Route: 048
     Dates: start: 20061114
  3. ENALAPRIL MALEATE [Concomitant]
     Route: 048
     Dates: start: 20061108
  4. BISOPROLOL [Concomitant]
     Route: 048
     Dates: start: 20040317
  5. FUROSEMIDE [Concomitant]
     Route: 048
     Dates: start: 20061107
  6. ISOSORBIDE MONONITRATE [Concomitant]
     Route: 048
     Dates: start: 20010501
  7. SIMVASTATIN [Concomitant]
     Route: 048
     Dates: start: 20060201
  8. ENOXAPARIN SODIUM [Concomitant]
     Route: 058
     Dates: start: 20050201, end: 20070328
  9. DOXAZOSIN MESYLATE [Concomitant]
     Route: 048
     Dates: start: 20050201
  10. ACETYLSALICYLIC ACID [Concomitant]
     Route: 048
     Dates: start: 20050201

REACTIONS (1)
  - BRONCHITIS [None]
